FAERS Safety Report 17893490 (Version 1)
Quarter: 2020Q2

REPORT INFORMATION
  Report Type: Spontaneous
  Country: FR (occurrence: FR)
  Receive Date: 20200615
  Receipt Date: 20200615
  Transmission Date: 20200714
  Serious: Yes (Other)
  Sender: FDA-Public Use
  Company Number: FR-ROCHE-2618414

PATIENT
  Age: 45 Year
  Sex: Male
  Weight: 51 kg

DRUGS (7)
  1. ZUCLOPENTHIXOL [Suspect]
     Active Substance: ZUCLOPENTHIXOL
     Indication: ANXIETY
     Route: 048
     Dates: start: 20190720
  2. ANDROCUR [Suspect]
     Active Substance: CYPROTERONE ACETATE
     Indication: BEHAVIOUR DISORDER
     Route: 048
     Dates: start: 20181026, end: 201910
  3. NOZINAN [LEVOMEPROMAZINE] [Suspect]
     Active Substance: LEVOMEPROMAZINE
     Indication: ANXIETY
     Route: 048
     Dates: start: 20181026, end: 20190521
  4. VALIUM [Suspect]
     Active Substance: DIAZEPAM
     Indication: ANXIETY
     Route: 048
     Dates: start: 20181026, end: 20190521
  5. AKINETON [Suspect]
     Active Substance: BIPERIDEN HYDROCHLORIDE
     Indication: PARKINSONISM
     Route: 048
     Dates: start: 20181026
  6. LOXAPAC [LOXAPINE] [Suspect]
     Active Substance: LOXAPINE
     Indication: ANXIETY
     Route: 048
     Dates: start: 20190821
  7. TERCIAN [CYAMEMAZINE] [Suspect]
     Active Substance: CYAMEMAZINE
     Indication: ANXIETY
     Route: 048
     Dates: start: 20190821

REACTIONS (1)
  - Meningioma [Not Recovered/Not Resolved]

NARRATIVE: CASE EVENT DATE: 20191007
